FAERS Safety Report 5689686-1 (Version None)
Quarter: 2008Q1

REPORT INFORMATION
  Report Type: 
  Country: None (occurrence: None)
  Receive Date: 20080328
  Receipt Date: 20080312
  Transmission Date: 20080703
  Serious: Yes (Hospitalization, Other)
  Sender: FDA-Public Use
  Company Number: S08-FRA-00545-01

PATIENT
  Age: 67 Year
  Sex: Female
  Weight: 75.5 kg

DRUGS (2)
  1. ESCITALOPRAM [Suspect]
     Dosage: 20 MG QD PO
     Route: 048
     Dates: start: 20071217, end: 20080125
  2. STRESAM (ETIFOXINE) [Concomitant]

REACTIONS (8)
  - BLOOD PRESSURE INCREASED [None]
  - COGWHEEL RIGIDITY [None]
  - COLD SWEAT [None]
  - HEADACHE [None]
  - INITIAL INSOMNIA [None]
  - NAUSEA [None]
  - PARKINSONISM [None]
  - TREMOR [None]
